FAERS Safety Report 13106976 (Version 3)
Quarter: 2017Q1

REPORT INFORMATION
  Report Type: Spontaneous
  Country: DE (occurrence: DE)
  Receive Date: 20170111
  Receipt Date: 20170308
  Transmission Date: 20170428
  Serious: Yes (Other)
  Sender: FDA-Public Use
  Company Number: DE-MYLANLABS-2017M1001641

PATIENT

DRUGS (1)
  1. FASTJEKT [Suspect]
     Active Substance: EPINEPHRINE
     Indication: PRODUCT USED FOR UNKNOWN INDICATION
     Dosage: UNK
     Route: 058
     Dates: start: 20170103, end: 20170103

REACTIONS (3)
  - Accidental exposure to product [Recovered/Resolved]
  - Injection site hypoaesthesia [Recovered/Resolved]
  - Injection site pallor [Recovered/Resolved]

NARRATIVE: CASE EVENT DATE: 20170103
